FAERS Safety Report 10032109 (Version 1)
Quarter: 2014Q1

REPORT INFORMATION
  Report Type: Spontaneous
  Country: JP (occurrence: JP)
  Receive Date: 20140324
  Receipt Date: 20140324
  Transmission Date: 20141002
  Serious: Yes (Death, Other)
  Sender: FDA-Public Use
  Company Number: JP-SA-2014SA032838

PATIENT
  Age: 78 Year
  Sex: Male

DRUGS (1)
  1. BCG FOR IMMUNOTHERAPY [Suspect]
     Indication: BLADDER CANCER
     Route: 043
     Dates: start: 200802, end: 200802

REACTIONS (10)
  - Malignant ascites [Fatal]
  - Gastric cancer [Fatal]
  - Renal impairment [Unknown]
  - Dermatomyositis [Unknown]
  - Dermatomyositis [Unknown]
  - Pruritus [Unknown]
  - Erythema [Unknown]
  - Erythema [Unknown]
  - Oedema peripheral [Unknown]
  - Dyspnoea [Unknown]
